FAERS Safety Report 4581127-0 (Version None)
Quarter: 2005Q1

REPORT INFORMATION
  Report Type: 
  Country: None (occurrence: None)
  Receive Date: 20050214
  Receipt Date: 20040811
  Transmission Date: 20050727
  Serious: No
  Sender: FDA-Public Use
  Company Number: US-GLAXOSMITHKLINE-A0521821A

PATIENT
  Age: 22 Month
  Sex: Male

DRUGS (3)
  1. LAMICTAL [Suspect]
     Indication: EPILEPSY
     Dosage: 50MG TWICE PER DAY
     Route: 048
     Dates: start: 20040806
  2. DILANTIN [Concomitant]
  3. PREVACID [Concomitant]

REACTIONS (4)
  - CRYING [None]
  - DEPRESSED MOOD [None]
  - HALITOSIS [None]
  - ILL-DEFINED DISORDER [None]
